FAERS Safety Report 10716472 (Version 1)
Quarter: 2015Q1

REPORT INFORMATION
  Report Type: Spontaneous
  Country: US (occurrence: None)
  Receive Date: 20150115
  Receipt Date: 20150115
  Transmission Date: 20150721
  Serious: Yes (Other)
  Sender: FDA-Public Use
  Company Number: None

PATIENT
  Sex: Female

DRUGS (2)
  1. BUPROPRION [Suspect]
     Active Substance: BUPROPION
     Indication: MAJOR DEPRESSION
     Dosage: 600 MG DAILY ORAL
     Route: 048
  2. BUPROPRION [Suspect]
     Active Substance: BUPROPION
     Indication: DEPRESSION
     Dosage: 600 MG DAILY ORAL
     Route: 048

REACTIONS (2)
  - General physical health deterioration [None]
  - Product substitution issue [None]

NARRATIVE: CASE EVENT DATE: 2008
